FAERS Safety Report 5702526-7 (Version None)
Quarter: 2008Q2

REPORT INFORMATION
  Report Type: 
  Country: None (occurrence: None)
  Receive Date: 20080411
  Receipt Date: 20070917
  Transmission Date: 20081010
  Serious: No
  Sender: FDA-Public Use
  Company Number: US-ASTRAZENECA-2007UW21884

PATIENT
  Age: 80 Year
  Sex: Female

DRUGS (5)
  1. ATENOLOL [Suspect]
     Route: 048
  2. DIOVAN HCT [Concomitant]
     Dosage: 320/12.5
  3. CLONIDINE HCL [Concomitant]
  4. AMLODIPINE BESYLATE [Concomitant]
  5. KLOR-CON [Concomitant]

REACTIONS (1)
  - JOINT SWELLING [None]
